FAERS Safety Report 7902027-1 (Version None)
Quarter: 2011Q4

REPORT INFORMATION
  Report Type: 
  Country: None (occurrence: None)
  Receive Date: 20111108
  Receipt Date: 20111028
  Transmission Date: 20120403
  Serious: Yes (Hospitalization, Congenital Anomaly)
  Sender: FDA-Public Use
  Company Number: US-GLAXOSMITHKLINE-A0950653A

PATIENT
  Sex: Male

DRUGS (1)
  1. PAXIL [Suspect]
     Indication: ANXIETY DISORDER
     Dosage: 20MG PER DAY
     Route: 064
     Dates: start: 19970101, end: 20080101

REACTIONS (5)
  - TALIPES [None]
  - CONGENITAL FOOT MALFORMATION [None]
  - BECKER'S NAEVUS [None]
  - ASTHMA [None]
  - FOETAL EXPOSURE DURING PREGNANCY [None]
